FAERS Safety Report 25336672 (Version 2)
Quarter: 2025Q2

REPORT INFORMATION
  Report Type: Spontaneous
  Country: US (occurrence: US)
  Receive Date: 20250520
  Receipt Date: 20250526
  Transmission Date: 20250716
  Serious: No
  Sender: LEO PHARM
  Company Number: US-LEO Pharma-379672

PATIENT
  Age: 60 Year
  Sex: Female

DRUGS (1)
  1. ADBRY [Suspect]
     Active Substance: TRALOKINUMAB-LDRM
     Indication: Dermatitis atopic
     Dosage: EXPIRY DATE IS 31-DEC-2025
     Route: 058
     Dates: start: 20241031, end: 20241220

REACTIONS (2)
  - Visual impairment [Recovered/Resolved]
  - Dyspnoea [Recovered/Resolved]
